FAERS Safety Report 8206243-3 (Version None)
Quarter: 2012Q1

REPORT INFORMATION
  Report Type: 
  Country: None (occurrence: None)
  Receive Date: 20120313
  Receipt Date: 20120309
  Transmission Date: 20120608
  Serious: Yes (Hospitalization, Disabling, Other)
  Sender: FDA-Public Use
  Company Number: BR-ROCHE-720062

PATIENT
  Sex: Female
  Weight: 77 kg

DRUGS (29)
  1. MABTHERA [Suspect]
     Route: 042
     Dates: start: 20081204, end: 20081204
  2. MABTHERA [Suspect]
     Dosage: ROUTE: ENDOVENOUS; DOSE: 100MG/10ML, FREQUENCY: 1000 MG, SECOND INFUSION WAS GIVEN ON 14 JULY 2010.
     Route: 042
     Dates: start: 20100629, end: 20100714
  3. CYCLOBENZAPRINE HCL [Concomitant]
  4. LOSARTAN POTASSIUM [Concomitant]
     Indication: HYPERTENSION
     Dosage: DRUG: LOSARTANA
  5. TYLENOL [Concomitant]
     Indication: PAIN
  6. NEOMYCIN [Concomitant]
     Indication: GASTROINTESTINAL DISORDER
  7. LIPLESS [Concomitant]
  8. AZITHROMYCIN [Suspect]
     Indication: NASOPHARYNGITIS
     Dosage: OTHER INDICATION: ASTHMA
     Route: 065
  9. ACECLOFENAC [Concomitant]
  10. TRAMADOL HYDROCHLORIDE [Concomitant]
     Indication: PAIN
  11. PREDNISONE TAB [Concomitant]
     Indication: PAIN
  12. OMEPRAZOLE [Concomitant]
     Indication: GASTRIC DISORDER
  13. MABTHERA [Suspect]
     Indication: RHEUMATOID ARTHRITIS
     Route: 042
     Dates: start: 20081117, end: 20081117
  14. LYRICA [Concomitant]
  15. DIURISA [Concomitant]
     Indication: POLYURIA
  16. BAMIFIX [Concomitant]
  17. LOSARTAN POTASSIUM [Concomitant]
  18. PENICILLAMINE [Concomitant]
     Indication: RHEUMATOID ARTHRITIS
  19. PENTALAC [Concomitant]
     Indication: GASTROINTESTINAL DISORDER
     Dosage: 3 OR 4 TIMES/DAY, OTHER INDICATION STOMACH CRISIS
  20. DOMPERIDONE [Concomitant]
     Dosage: INDICATION: STOMACH CRISIS
  21. FLUTICASONE FUROATE [Concomitant]
  22. MABTHERA [Suspect]
  23. DICLOFENAC SODIUM [Concomitant]
  24. CELEBREX [Concomitant]
     Indication: PAIN
  25. DOMPERIDONE [Concomitant]
     Dosage: WHEN NECESSARY
  26. CORTISONE ACETATE [Concomitant]
  27. DIUPRESS [Concomitant]
  28. TYLENOL [Concomitant]
  29. AMLODIPINE [Concomitant]

REACTIONS (36)
  - DIZZINESS [None]
  - HEADACHE [None]
  - HYPERTENSION [None]
  - BRONCHITIS [None]
  - NAUSEA [None]
  - HYPERAESTHESIA [None]
  - SKIN MASS [None]
  - PAIN [None]
  - INSOMNIA [None]
  - BODY HEIGHT DECREASED [None]
  - NASOPHARYNGITIS [None]
  - ERYTHEMA [None]
  - CONSTIPATION [None]
  - CHILLS [None]
  - BACK PAIN [None]
  - ASTHMATIC CRISIS [None]
  - KNEE ARTHROPLASTY [None]
  - SWELLING [None]
  - BLOOD CHOLESTEROL INCREASED [None]
  - HYPOTENSION [None]
  - PALPITATIONS [None]
  - BONE PAIN [None]
  - MUSCULAR WEAKNESS [None]
  - GASTRITIS [None]
  - ARTHRALGIA [None]
  - ANAEMIA [None]
  - MUSCULOSKELETAL DISORDER [None]
  - PROTEIN TOTAL DECREASED [None]
  - ENCEPHALOPATHY [None]
  - HEPATITIS C [None]
  - MEMORY IMPAIRMENT [None]
  - MUSCULOSKELETAL STIFFNESS [None]
  - DECREASED IMMUNE RESPONSIVENESS [None]
  - MUSCULOSKELETAL DEFORMITY [None]
  - ASTHMA [None]
  - OSTEOARTHRITIS [None]
